FAERS Safety Report 9887633 (Version 1)
Quarter: 2014Q1

REPORT INFORMATION
  Report Type: Spontaneous
  Country: CN (occurrence: CN)
  Receive Date: 20140211
  Receipt Date: 20140211
  Transmission Date: 20141002
  Serious: No
  Sender: FDA-Public Use
  Company Number: CN-JNJFOC-20140118155

PATIENT
  Age: 71 Year
  Sex: Male

DRUGS (3)
  1. DUROGESIC [Suspect]
     Indication: RECTAL CANCER
     Route: 061
     Dates: start: 2012
  2. TRAMAL [Concomitant]
     Route: 065
  3. OXYCONTIN [Concomitant]
     Route: 065

REACTIONS (3)
  - Wrong technique in drug usage process [Unknown]
  - Pain [Unknown]
  - Drug prescribing error [Unknown]
